FAERS Safety Report 18719374 (Version 1)
Quarter: 2021Q1

REPORT INFORMATION
  Report Type: Report from Study
  Country: None (occurrence: US)
  Receive Date: 20210109
  Receipt Date: 20210109
  Transmission Date: 20210419
  Serious: Yes (Hospitalization)
  Sender: FDA-Public Use
  Company Number: US-ABBVIE-20K-163-3691295-00

PATIENT
  Age: 37 Year
  Sex: Female

DRUGS (3)
  1. HUMIRA [Suspect]
     Active Substance: ADALIMUMAB
     Route: 058
     Dates: start: 2020
  2. HUMIRA [Suspect]
     Active Substance: ADALIMUMAB
     Indication: PSORIATIC ARTHROPATHY
     Dosage: DAY 8
     Route: 058
     Dates: start: 20200923, end: 2020
  3. HUMIRA [Suspect]
     Active Substance: ADALIMUMAB
     Indication: PSORIASIS
     Route: 058
     Dates: start: 20200916, end: 20200916

REACTIONS (12)
  - Head injury [Unknown]
  - Psoriatic arthropathy [Recovered/Resolved]
  - Psoriasis [Recovering/Resolving]
  - Intentional product misuse [Unknown]
  - Injection site erythema [Not Recovered/Not Resolved]
  - Fall [Unknown]
  - COVID-19 [Recovered/Resolved]
  - Syncope [Unknown]
  - Concussion [Unknown]
  - Eye contusion [Not Recovered/Not Resolved]
  - Contusion [Unknown]
  - Dizziness [Unknown]

NARRATIVE: CASE EVENT DATE: 2020
